FAERS Safety Report 24886250 (Version 1)
Quarter: 2025Q1

REPORT INFORMATION
  Report Type: Spontaneous
  Country: CN (occurrence: CN)
  Receive Date: 20250125
  Receipt Date: 20250125
  Transmission Date: 20250408
  Serious: Yes (Other)
  Sender: JIANGSU HENGRUI PHARMACEUTICALS CO., LTD.
  Company Number: CN-JIANGSU HENGRUI PHARMACEUTICALS CO., LTD.-H2025200877

PATIENT
  Age: 83 Year
  Weight: 65 kg

DRUGS (6)
  1. PACLITAXEL [Suspect]
     Active Substance: PACLITAXEL
     Indication: Lung neoplasm malignant
     Dosage: 150 MG, D1?D8
  2. PACLITAXEL [Suspect]
     Active Substance: PACLITAXEL
     Dosage: 150 MG, D1?D8
  3. SINTILIMAB [Suspect]
     Active Substance: SINTILIMAB
     Indication: Lung neoplasm malignant
     Dosage: 200 MG, Q3W
  4. SINTILIMAB [Suspect]
     Active Substance: SINTILIMAB
     Dosage: 200 MG, Q3W
  5. CARBOPLATIN [Suspect]
     Active Substance: CARBOPLATIN
     Indication: Lung neoplasm malignant
     Dosage: 290 MG, Q3W, D1
  6. CARBOPLATIN [Suspect]
     Active Substance: CARBOPLATIN
     Dosage: 290 MG, Q3W, D1

REACTIONS (2)
  - Granulocyte count decreased [Recovering/Resolving]
  - Renal impairment [Recovering/Resolving]
